FAERS Safety Report 9857054 (Version 2)
Quarter: 2014Q1

REPORT INFORMATION
  Report Type: Report from Study
  Country: FR (occurrence: FR)
  Receive Date: 20140130
  Receipt Date: 20140306
  Transmission Date: 20141002
  Serious: Yes (Other)
  Sender: FDA-Public Use
  Company Number: FR-BRISTOL-MYERS SQUIBB COMPANY-20095600

PATIENT
  Age: 78 Year
  Sex: Female
  Weight: 29 kg

DRUGS (4)
  1. ORENCIA [Suspect]
     Indication: RHEUMATOID ARTHRITIS
     Route: 042
     Dates: start: 20130107
  2. PREDNISONE [Suspect]
     Route: 048
  3. CORTANCYL [Concomitant]
     Route: 048
  4. ZALDIAR [Concomitant]
     Dosage: 1DF= TABS

REACTIONS (1)
  - Lymphopenia [Not Recovered/Not Resolved]
